FAERS Safety Report 5350406-1 (Version None)
Quarter: 2007Q2

REPORT INFORMATION
  Report Type: 
  Country: None (occurrence: None)
  Receive Date: 20070605
  Receipt Date: 20070605
  Transmission Date: 20071010
  Serious: Yes (Hospitalization)
  Sender: FDA-Public Use
  Company Number: None

PATIENT
  Age: 65 Year
  Sex: Male
  Weight: 73.0291 kg

DRUGS (1)
  1. LINEZOLID [Suspect]
     Indication: BACTERAEMIA
     Dosage: LINEZOLID 600 MG PO
     Route: 048
     Dates: start: 20061103, end: 20061120

REACTIONS (2)
  - ANAEMIA [None]
  - THROMBOCYTOPENIA [None]
